FAERS Safety Report 19091858 (Version 1)
Quarter: 2021Q2

REPORT INFORMATION
  Report Type: Spontaneous
  Country: US (occurrence: US)
  Receive Date: 20210405
  Receipt Date: 20210405
  Transmission Date: 20210717
  Serious: No
  Sender: FDA-Public Use
  Company Number: US-AMGEN-USASP2021048519

PATIENT
  Age: 69 Year
  Sex: Female

DRUGS (6)
  1. PROLIA [Suspect]
     Active Substance: DENOSUMAB
     Indication: PRODUCT USED FOR UNKNOWN INDICATION
     Dosage: UNK
     Route: 065
     Dates: start: 201903
  2. VALSARTAN + HCTZ [Concomitant]
     Active Substance: HYDROCHLOROTHIAZIDE\VALSARTAN
     Dosage: 320MG/25MG, QD
  3. SIMVASTATIN. [Concomitant]
     Active Substance: SIMVASTATIN
     Dosage: 20 MILLIGRAM, QD
  4. VITAMIN D [COLECALCIFEROL] [Concomitant]
     Active Substance: CHOLECALCIFEROL
  5. RILUZOLE. [Concomitant]
     Active Substance: RILUZOLE
     Dosage: 50 MILLIGRAM, BID
     Dates: start: 202011
  6. CALCIUM [Concomitant]
     Active Substance: CALCIUM

REACTIONS (7)
  - Walking aid user [Unknown]
  - Off label use [Unknown]
  - Dysphagia [Unknown]
  - Balance disorder [Not Recovered/Not Resolved]
  - Fall [Unknown]
  - Dysarthria [Not Recovered/Not Resolved]
  - Diplopia [Unknown]

NARRATIVE: CASE EVENT DATE: 201903
